FAERS Safety Report 6288498-8 (Version None)
Quarter: 2009Q3

REPORT INFORMATION
  Report Type: 
  Country: None (occurrence: None)
  Receive Date: 20090729
  Receipt Date: 20070917
  Transmission Date: 20100115
  Serious: Yes (Hospitalization, Other)
  Sender: FDA-Public Use
  Company Number: US-ASTRAZENECA-2007UW16506

PATIENT
  Age: 44 Year
  Sex: Male
  Weight: 99.8 kg

DRUGS (11)
  1. SEROQUEL [Suspect]
     Indication: SCHIZOAFFECTIVE DISORDER
     Route: 048
     Dates: start: 19970801
  2. SEROQUEL [Suspect]
     Route: 048
     Dates: start: 19970801
  3. SEROQUEL [Suspect]
     Route: 048
     Dates: start: 19970801
  4. SEROQUEL [Suspect]
     Dosage: 60-900 MG
     Route: 048
     Dates: start: 20021206
  5. RISPERDAL [Concomitant]
     Indication: SCHIZOAFFECTIVE DISORDER
     Dates: start: 19980101, end: 20030101
  6. ABILIFY [Concomitant]
     Route: 048
     Dates: start: 19790101
  7. ABILIFY [Concomitant]
     Dates: start: 20070220
  8. LEXAPRO [Concomitant]
     Dates: start: 20070220
  9. REMERON [Concomitant]
     Dates: start: 20070220
  10. NEURONTIN [Concomitant]
     Route: 048
     Dates: start: 20070220
  11. PAXIL [Concomitant]
     Dates: start: 20050705

REACTIONS (5)
  - DIABETES MELLITUS [None]
  - DIABETES MELLITUS INADEQUATE CONTROL [None]
  - DIABETIC NEUROPATHY [None]
  - LEG AMPUTATION [None]
  - TOE AMPUTATION [None]
